FAERS Safety Report 6259106-7 (Version None)
Quarter: 2009Q3

REPORT INFORMATION
  Report Type: 
  Country: None (occurrence: None)
  Receive Date: 20090702
  Receipt Date: 20090629
  Transmission Date: 20100115
  Serious: Yes (Life-Threatening, Hospitalization)
  Sender: FDA-Public Use
  Company Number: VISP-PR-0906S-0299

PATIENT
  Age: 85 Year
  Sex: Male
  Weight: 147.7 kg

DRUGS (20)
  1. VISIPAQUE [Suspect]
     Indication: PERCUTANEOUS CORONARY INTERVENTION
     Dosage: 150 ML, SINGLE PERCUTANEOUS
     Route: 058
     Dates: start: 20090406, end: 20090406
  2. VANCOMYCIN [Concomitant]
  3. CLOPIDOGREL [Concomitant]
  4. GLYCERYL TRINITRATE [Concomitant]
  5. XOPENEX [Concomitant]
  6. DOXAZOSIN MESYLATE [Concomitant]
  7. METOPROLOL TARTRATE [Concomitant]
  8. FINASTERIDE [Concomitant]
  9. CARVEDILOL [Concomitant]
  10. FUROSEMIDE [Concomitant]
  11. SIMVASTATIN [Concomitant]
  12. INSULIN LISPRO [Concomitant]
  13. PANTOPRAZOLE SODIUM [Concomitant]
  14. FERROUS SULFATE TAB [Concomitant]
  15. ACETYLCYSTEINE [Concomitant]
  16. EPOETIN ALPHA [Concomitant]
  17. ALPRAZOLAM [Concomitant]
  18. METOLAZONE [Concomitant]
  19. MOXIFLOXACIN HCL [Concomitant]
  20. ASPIRIN [Concomitant]

REACTIONS (3)
  - CARDIOGENIC SHOCK [None]
  - HAEMODIALYSIS [None]
  - RENAL FAILURE ACUTE [None]
